FAERS Safety Report 15953455 (Version 1)
Quarter: 2019Q1

REPORT INFORMATION
  Report Type: Spontaneous
  Country: FR (occurrence: FR)
  Receive Date: 20190212
  Receipt Date: 20190212
  Transmission Date: 20190417
  Serious: Yes (Other)
  Sender: FDA-Public Use
  Company Number: FR-ALLERGAN-1905838US

PATIENT
  Age: 76 Year
  Sex: Male

DRUGS (1)
  1. MEMANTINE HCL - BP [Suspect]
     Active Substance: MEMANTINE
     Indication: PRIMARY PROGRESSIVE APHASIA
     Dosage: 20 MG, QD
     Route: 048
     Dates: start: 201506, end: 201808

REACTIONS (3)
  - Condition aggravated [Recovered/Resolved]
  - Product administration interrupted [Recovered/Resolved]
  - Product use in unapproved indication [Unknown]

NARRATIVE: CASE EVENT DATE: 201808
